FAERS Safety Report 8471365-9 (Version None)
Quarter: 2012Q2

REPORT INFORMATION
  Report Type: 
  Country: None (occurrence: None)
  Receive Date: 20120627
  Receipt Date: 20120621
  Transmission Date: 20120825
  Serious: Yes (Hospitalization, Disabling)
  Sender: FDA-Public Use
  Company Number: JP-GILEAD-2012-0055035

PATIENT
  Sex: Male

DRUGS (14)
  1. CANDESARTAN CILEXETIL [Concomitant]
     Dosage: 12MG PER DAY
     Route: 048
  2. FLIVASTATIN SODIUM [Concomitant]
     Dosage: 25MG PER DAY
     Route: 048
  3. HEPSERA [Suspect]
     Indication: HEPATITIS B
     Dosage: 10 MG, QD
     Route: 048
     Dates: start: 20041024
  4. VITAMIN B12 [Concomitant]
     Route: 065
  5. ALINAMIN-F                         /00257802/ [Concomitant]
     Route: 065
  6. CERNILTON                          /00521401/ [Concomitant]
     Dosage: 63MG PER DAY
     Route: 048
  7. CANDESARTAN CILEXETIL [Concomitant]
     Route: 048
  8. CANDESARTAN CILEXETIL [Concomitant]
     Route: 048
  9. VITAMIN B12 [Concomitant]
     Indication: PRODUCT USED FOR UNKNOWN INDICATION
     Route: 065
  10. LAMIVUDINE [Suspect]
     Indication: HEPATITIS B
     Dosage: 100MG PER DAY
     Route: 048
     Dates: start: 19960803, end: 20110818
  11. ALINAMIN-F                         /06868601/ [Concomitant]
     Route: 065
  12. HEPSERA [Suspect]
     Dosage: 10MG ALTERNATE DAYS
     Route: 048
     Dates: start: 20110819
  13. LAMIVUDINE [Suspect]
     Dosage: 200 MG, QOD
     Route: 048
     Dates: start: 20110819
  14. VITAMIN B12 [Concomitant]
     Route: 065

REACTIONS (7)
  - PAIN IN EXTREMITY [None]
  - OSTEOMALACIA [None]
  - HYPOPHOSPHATAEMIA [None]
  - GAIT DISTURBANCE [None]
  - ASTHENIA [None]
  - MUSCULAR WEAKNESS [None]
  - BLOOD CREATININE INCREASED [None]
